FAERS Safety Report 24859570 (Version 1)
Quarter: 2025Q1

REPORT INFORMATION
  Report Type: Spontaneous
  Country: US (occurrence: US)
  Receive Date: 20250119
  Receipt Date: 20250119
  Transmission Date: 20250409
  Serious: Yes (Other)
  Sender: AMGEN
  Company Number: US-AMGEN-USASP2025006881

PATIENT

DRUGS (6)
  1. RITUXIMAB [Suspect]
     Active Substance: RITUXIMAB
     Indication: Immunosuppression
     Route: 065
  2. THYMOGLOBULIN [Concomitant]
     Active Substance: LAPINE T-LYMPHOCYTE IMMUNE GLOBULIN
     Indication: Immunosuppression
  3. BELATACEPT [Concomitant]
     Active Substance: BELATACEPT
     Indication: Immunosuppression
  4. MYCOPHENOLATE MOFETIL [Concomitant]
     Active Substance: MYCOPHENOLATE MOFETIL
     Indication: Immunosuppression
  5. TACROLIMUS [Concomitant]
     Active Substance: TACROLIMUS
     Indication: Immunosuppression
  6. ECULIZUMAB [Concomitant]
     Active Substance: ECULIZUMAB
     Indication: Immunosuppression

REACTIONS (6)
  - Bacteraemia [Unknown]
  - Renal tubular necrosis [Unknown]
  - Renal cortical necrosis [Unknown]
  - Renal haemorrhage [Unknown]
  - Pyrexia [Unknown]
  - Off label use [Unknown]
